FAERS Safety Report 20057257 (Version 6)
Quarter: 2022Q1

REPORT INFORMATION
  Report Type: Spontaneous
  Country: US (occurrence: US)
  Receive Date: 20211111
  Receipt Date: 20220106
  Transmission Date: 20220423
  Serious: Yes (Hospitalization, Other)
  Sender: FDA-Public Use
  Company Number: US-CELGENE-USA-20211101876

PATIENT
  Age: 56 Year
  Sex: Female
  Weight: 97.610 kg

DRUGS (2)
  1. REVLIMID [Suspect]
     Active Substance: LENALIDOMIDE
     Indication: Plasma cell myeloma
     Dosage: 25 MILLIGRAM
     Route: 048
     Dates: start: 20180618
  2. REVLIMID [Suspect]
     Active Substance: LENALIDOMIDE
     Dosage: 10 MILLIGRAM
     Route: 048
     Dates: start: 202105

REACTIONS (8)
  - West Nile viral infection [Unknown]
  - Urinary tract infection [Unknown]
  - Chronic obstructive pulmonary disease [Unknown]
  - Rash [Unknown]
  - Sneezing [Unknown]
  - Bone pain [Unknown]
  - Influenza like illness [Unknown]
  - Gait disturbance [Unknown]

NARRATIVE: CASE EVENT DATE: 20211001
